FAERS Safety Report 5357452-2 (Version None)
Quarter: 2007Q2

REPORT INFORMATION
  Report Type: 
  Country: None (occurrence: None)
  Receive Date: 20070530
  Receipt Date: 20070123
  Transmission Date: 20071010
  Serious: Yes (Hospitalization, Other)
  Sender: FDA-Public Use
  Company Number: US200607001073

PATIENT
  Age: 35 Year
  Sex: Female
  Weight: 116.1 kg

DRUGS (7)
  1. ZYPREXA [Suspect]
     Indication: BIPOLAR DISORDER
     Dosage: 10 MG, EACH EVENING
     Dates: start: 20040101, end: 20060301
  2. PAXIL [Concomitant]
  3. ABILIFY [Concomitant]
  4. SEROQUEL [Concomitant]
  5. LAMICTAL [Concomitant]
  6. TOPAMAX [Concomitant]
  7. PROZAC [Concomitant]

REACTIONS (6)
  - BLOOD CHOLESTEROL ABNORMAL [None]
  - CHOLELITHIASIS [None]
  - DIABETES MELLITUS [None]
  - HYPERGLYCAEMIC HYPEROSMOLAR NONKETOTIC SYNDROME [None]
  - HYPERTENSION [None]
  - METABOLIC DISORDER [None]
